FAERS Safety Report 13549514 (Version 1)
Quarter: 2017Q2

REPORT INFORMATION
  Report Type: Other
  Country: IT (occurrence: IT)
  Receive Date: 20170516
  Receipt Date: 20170516
  Transmission Date: 20170830
  Serious: Yes (Hospitalization, Other)
  Sender: FDA-Public Use
  Company Number: IT-APOTEX-2017AP011998

PATIENT
  Age: 70 Year
  Sex: Female

DRUGS (7)
  1. TOPIRAMATO DOC GENERICI COMPRESSE RIVESTITE CON FILM [Suspect]
     Active Substance: TOPIRAMATE
     Indication: PARTIAL SEIZURES
     Dosage: 50 MG, BID
     Route: 048
     Dates: start: 20170321, end: 20170324
  2. TOPIRAMATO DOC GENERICI COMPRESSE RIVESTITE CON FILM [Suspect]
     Active Substance: TOPIRAMATE
     Dosage: 100 MG, BID
     Route: 048
     Dates: start: 20170325, end: 20170328
  3. TOPIRAMATO DOC GENERICI COMPRESSE RIVESTITE CON FILM [Suspect]
     Active Substance: TOPIRAMATE
     Dosage: 150 MG, BID
     Route: 048
     Dates: start: 20170329, end: 20170330
  4. DEPAKIN [Suspect]
     Active Substance: VALPROATE SODIUM
     Indication: PARTIAL SEIZURES
     Dosage: 400 MG, PRN
     Route: 042
     Dates: start: 20170320
  5. LEVETIRACETAM. [Concomitant]
     Active Substance: LEVETIRACETAM
     Indication: PRODUCT USED FOR UNKNOWN INDICATION
     Route: 065
  6. ZOLPIDEM [Concomitant]
     Active Substance: ZOLPIDEM\ZOLPIDEM TARTRATE
     Indication: PRODUCT USED FOR UNKNOWN INDICATION
     Route: 065
  7. DEPAKIN [Suspect]
     Active Substance: VALPROATE SODIUM
     Dosage: 1600 MG, PRN
     Route: 042

REACTIONS (3)
  - Liver disorder [Recovered/Resolved]
  - Drug interaction [Unknown]
  - Coma acidotic [Recovered/Resolved]

NARRATIVE: CASE EVENT DATE: 20170326
